FAERS Safety Report 5527907-6 (Version None)
Quarter: 2007Q4

REPORT INFORMATION
  Report Type: 
  Country: None (occurrence: None)
  Receive Date: 20071128
  Receipt Date: 20071119
  Transmission Date: 20080405
  Serious: Yes (Hospitalization, Other)
  Sender: FDA-Public Use
  Company Number: FR-JNJFOC-20070506223

PATIENT
  Sex: Male
  Weight: 116 kg

DRUGS (7)
  1. REMICADE [Suspect]
     Route: 042
  2. REMICADE [Suspect]
     Route: 042
  3. REMICADE [Suspect]
     Indication: PSORIASIS
     Route: 042
  4. AERIUS [Concomitant]
     Route: 048
  5. IRBESARTAN [Concomitant]
     Route: 048
  6. METFORMIN HCL [Concomitant]
     Dosage: 2 DF QD
     Route: 048
  7. EFFEXOR [Concomitant]
     Route: 048

REACTIONS (8)
  - ARTHRALGIA [None]
  - ARTHRITIS [None]
  - HYPERTENSION [None]
  - INFUSION RELATED REACTION [None]
  - OEDEMA PERIPHERAL [None]
  - PARAESTHESIA [None]
  - PYREXIA [None]
  - SYNCOPE VASOVAGAL [None]
